FAERS Safety Report 17409190 (Version 1)
Quarter: 2020Q1

REPORT INFORMATION
  Report Type: Spontaneous
  Country: US (occurrence: US)
  Receive Date: 20200212
  Receipt Date: 20200212
  Transmission Date: 20200409
  Serious: Yes (Other)
  Sender: FDA-Public Use
  Company Number: US-AMGEN-USASP2020022055

PATIENT
  Age: 7 Year
  Sex: Female
  Weight: 16.78 kg

DRUGS (3)
  1. ARANESP [Suspect]
     Active Substance: DARBEPOETIN ALFA
     Indication: NEPHROGENIC ANAEMIA
     Dosage: 25 MCG/ML 12.5 MCG
     Route: 065
     Dates: start: 201906
  2. COREG [Concomitant]
     Active Substance: CARVEDILOL
  3. ASPIRIN [ACETYLSALICYLIC ACID] [Concomitant]
     Active Substance: ASPIRIN
     Dosage: UNK

REACTIONS (3)
  - Haemoglobin decreased [Unknown]
  - Vascular access site thrombosis [Unknown]
  - Vascular access site haemorrhage [Unknown]

NARRATIVE: CASE EVENT DATE: 20190730
